FAERS Safety Report 11131191 (Version 1)
Quarter: 2015Q2

REPORT INFORMATION
  Report Type: Report from Study
  Country: KR (occurrence: KR)
  Receive Date: 20150522
  Receipt Date: 20150522
  Transmission Date: 20150821
  Serious: Yes (Hospitalization)
  Sender: FDA-Public Use
  Company Number: KR-AMGEN-KORCT2015049525

PATIENT
  Age: 47 Year
  Sex: Female

DRUGS (45)
  1. DEXAMETHASONE. [Concomitant]
     Active Substance: DEXAMETHASONE
     Dosage: 10 MG, UNK
     Route: 042
     Dates: start: 20150414, end: 20150414
  2. APREPITANT. [Concomitant]
     Active Substance: APREPITANT
     Dosage: 80 MG, UNK
     Route: 048
     Dates: start: 20150325, end: 20150326
  3. MEGESTROL ACETATE. [Concomitant]
     Active Substance: MEGESTROL ACETATE
     Dosage: 800 MG, UNK
     Route: 048
     Dates: start: 20150331, end: 20150401
  4. VITAMEDIN                          /00176001/ [Concomitant]
     Dosage: 50 MG, UNK
     Route: 048
     Dates: start: 20150331, end: 20150401
  5. PEGFILGRASTIM [Suspect]
     Active Substance: PEGFILGRASTIM
     Dosage: 6 MG, 1X/3WEEKS
     Route: 058
     Dates: start: 20150415
  6. DOXORUBICIN [Concomitant]
     Active Substance: DOXORUBICIN
     Dosage: 73 MG, UNK
     Route: 042
     Dates: start: 20150324, end: 20150324
  7. DEXAMETHASONE. [Concomitant]
     Active Substance: DEXAMETHASONE
     Dosage: 3 MG, UNK
     Route: 048
     Dates: start: 20150325, end: 20150326
  8. RANITIDINE [Concomitant]
     Active Substance: RANITIDINE\RANITIDINE HYDROCHLORIDE
     Dosage: 300 MG, UNK
     Route: 048
     Dates: start: 20150414, end: 20150416
  9. APREPITANT. [Concomitant]
     Active Substance: APREPITANT
     Dosage: 125 MG, UNK
     Route: 048
     Dates: start: 20150414, end: 20150414
  10. DIMENHYDRINATE. [Concomitant]
     Active Substance: DIMENHYDRINATE
     Dosage: 150 MG, UNK
     Route: 048
     Dates: start: 20150414, end: 20150416
  11. FILGRASTIM: G-CSF [Concomitant]
     Dosage: 150 MCG, UNK
     Route: 058
     Dates: start: 20150421, end: 20150422
  12. TRESTAN                            /00056201/ [Concomitant]
     Dosage: 2 CAPSULE, UNK
     Route: 048
     Dates: start: 20150421, end: 20150422
  13. FERRIC HYDROXIDE [Concomitant]
     Active Substance: FERRIC HYDROXIDE
     Dosage: 100 MG, UNK
     Route: 042
     Dates: start: 20150401, end: 20150401
  14. CYCLOPHOSPHAMIDE. [Concomitant]
     Active Substance: CYCLOPHOSPHAMIDE
     Dosage: 730 MG, UNK
     Route: 042
     Dates: start: 20150324, end: 20150324
  15. TOBRA                              /00304201/ [Concomitant]
     Dosage: 200 MG, UNK
     Route: 042
     Dates: start: 20150331, end: 20150402
  16. DARBEPOETIN ALFA [Concomitant]
     Active Substance: DARBEPOETIN ALFA
     Dosage: 378 MCG, UNK
     Route: 042
     Dates: start: 20150402, end: 20150402
  17. PALONOSETRON [Concomitant]
     Active Substance: PALONOSETRON
     Dosage: 0.25 MG, UNK
     Route: 042
     Dates: start: 20150414, end: 20150414
  18. DEXRAZOXANE. [Concomitant]
     Active Substance: DEXRAZOXANE
     Dosage: 730 MG, UNK
     Route: 042
     Dates: start: 20150324, end: 20150324
  19. FILGRASTIM: G-CSF [Concomitant]
     Dosage: 150 MCG, UNK
     Route: 058
     Dates: start: 20150331, end: 20150401
  20. VITAMEDIN                          /00176001/ [Concomitant]
     Dosage: 50 MG, UNK
     Route: 048
     Dates: start: 20150421, end: 20150422
  21. DOCETAXEL. [Concomitant]
     Active Substance: DOCETAXEL
     Dosage: 109 MG, UNK
     Route: 042
     Dates: start: 20150414, end: 20150414
  22. DOXORUBICIN [Concomitant]
     Active Substance: DOXORUBICIN
     Dosage: 73 MG, UNK
     Route: 042
     Dates: start: 20150414, end: 20150414
  23. APREPITANT. [Concomitant]
     Active Substance: APREPITANT
     Dosage: 125 MG, UNK
     Route: 048
     Dates: start: 20150324, end: 20150324
  24. METOCLOPRAMIDE HCL [Concomitant]
     Active Substance: METOCLOPRAMIDE HYDROCHLORIDE
     Dosage: 30 MG, UNK
     Route: 048
     Dates: start: 20150414, end: 20150416
  25. DOCETAXEL. [Concomitant]
     Active Substance: DOCETAXEL
     Dosage: 109 MG, UNK
     Route: 042
     Dates: start: 20150504, end: 20150504
  26. DOXORUBICIN [Concomitant]
     Active Substance: DOXORUBICIN
     Dosage: 73 MG, UNK
     Route: 042
     Dates: start: 20150504, end: 20150504
  27. CYCLOPHOSPHAMIDE. [Concomitant]
     Active Substance: CYCLOPHOSPHAMIDE
     Dosage: 730 MG, UNK
     Route: 042
     Dates: start: 20150504, end: 20150504
  28. DEXAMETHASONE. [Concomitant]
     Active Substance: DEXAMETHASONE
     Dosage: 10 MG, UNK
     Route: 042
     Dates: start: 20150324, end: 20150324
  29. RANITIDINE [Concomitant]
     Active Substance: RANITIDINE\RANITIDINE HYDROCHLORIDE
     Dosage: 300 MG, UNK
     Route: 048
     Dates: start: 20150324, end: 20150326
  30. DIMENHYDRINATE. [Concomitant]
     Active Substance: DIMENHYDRINATE
     Dosage: 150 MG, UNK
     Route: 048
     Dates: start: 20150324, end: 20150326
  31. TRESTAN                            /00056201/ [Concomitant]
     Dosage: 2 CAPSULE, UNK
     Route: 048
     Dates: start: 20150331, end: 20150401
  32. TOBRAMYCIN. [Concomitant]
     Active Substance: TOBRAMYCIN
     Dosage: 200 MG, UNK
     Route: 042
     Dates: start: 20150421, end: 20150422
  33. DOCETAXEL. [Concomitant]
     Active Substance: DOCETAXEL
     Dosage: 109 MG, UNK
     Route: 042
     Dates: start: 20150324, end: 20150324
  34. CYCLOPHOSPHAMIDE. [Concomitant]
     Active Substance: CYCLOPHOSPHAMIDE
     Dosage: 730 MG, UNK
     Route: 042
     Dates: start: 20150414, end: 20150414
  35. DEXAMETHASONE. [Concomitant]
     Active Substance: DEXAMETHASONE
     Dosage: 3 MG, UNK
     Route: 048
     Dates: start: 20150415, end: 20150416
  36. PALONOSETRON [Concomitant]
     Active Substance: PALONOSETRON
     Dosage: 0.25 MG, UNK
     Route: 042
     Dates: start: 20150324, end: 20150324
  37. METOCLOPRAMIDE HCL [Concomitant]
     Active Substance: METOCLOPRAMIDE HYDROCHLORIDE
     Dosage: 30 MG, UNK
     Route: 048
     Dates: start: 20150324, end: 20150326
  38. CEFOBACTAM [Concomitant]
     Dosage: 1 G, UNK
     Route: 042
     Dates: start: 20150331, end: 20150402
  39. CEFOBACTAM [Concomitant]
     Dosage: 2 G, UNK
     Route: 042
     Dates: start: 20150421, end: 20150422
  40. SMOFKABIVEN PERIPHERAL [Concomitant]
     Dosage: 1BAG
     Route: 042
     Dates: start: 20150422, end: 20150422
  41. PEGFILGRASTIM [Suspect]
     Active Substance: PEGFILGRASTIM
     Indication: FEBRILE NEUTROPENIA
     Dosage: 6 MG, 1X/3WEEKS
     Route: 058
     Dates: start: 20150325
  42. PEGFILGRASTIM [Suspect]
     Active Substance: PEGFILGRASTIM
     Dosage: 6 MG, 1X/3WEEKS
     Route: 058
     Dates: start: 20150505
  43. DEXRAZOXANE. [Concomitant]
     Active Substance: DEXRAZOXANE
     Dosage: 730 MG, UNK
     Route: 042
     Dates: start: 20150414, end: 20150414
  44. APREPITANT. [Concomitant]
     Active Substance: APREPITANT
     Dosage: 80 MG, UNK
     Route: 048
     Dates: start: 20150415, end: 20150416
  45. MEGESTROL ACETATE. [Concomitant]
     Active Substance: MEGESTROL ACETATE
     Dosage: 20 ML, UNK
     Route: 048
     Dates: start: 20150421, end: 20150422

REACTIONS (1)
  - Febrile neutropenia [Recovered/Resolved]

NARRATIVE: CASE EVENT DATE: 20150512
